FAERS Safety Report 10292741 (Version 1)
Quarter: 2014Q3

REPORT INFORMATION
  Report Type: Spontaneous
  Country: US (occurrence: US)
  Receive Date: 20140710
  Receipt Date: 20140710
  Transmission Date: 20150326
  Serious: No
  Sender: FDA-Public Use
  Company Number: US-PURDUE-USA-2013-0108365

PATIENT
  Sex: Female

DRUGS (1)
  1. BUTRANS [Suspect]
     Active Substance: BUPRENORPHINE
     Indication: COMPLEX REGIONAL PAIN SYNDROME
     Dosage: 20 MCG/HR, WEEKLY
     Route: 062

REACTIONS (6)
  - Application site erythema [Unknown]
  - Malaise [Unknown]
  - Application site swelling [Unknown]
  - Application site warmth [Unknown]
  - Device leakage [Unknown]
  - Nausea [Unknown]

NARRATIVE: CASE EVENT DATE: 20131028
